FAERS Safety Report 13230564 (Version 2)
Quarter: 2017Q1

REPORT INFORMATION
  Report Type: Spontaneous
  Country: IT (occurrence: IT)
  Receive Date: 20170214
  Receipt Date: 20170216
  Transmission Date: 20170428
  Serious: Yes (Other)
  Sender: FDA-Public Use
  Company Number: IT-GLAXOSMITHKLINE-IT2017GSK020416

PATIENT
  Age: 72 Year
  Sex: Male

DRUGS (2)
  1. MITTOVAL [Concomitant]
     Active Substance: ALFUZOSIN HYDROCHLORIDE
     Indication: BENIGN PROSTATIC HYPERPLASIA
     Dosage: UNK
  2. AVODART [Suspect]
     Active Substance: DUTASTERIDE
     Indication: BENIGN PROSTATIC HYPERPLASIA
     Dosage: UNK

REACTIONS (4)
  - Exposure via ingestion [Recovering/Resolving]
  - Accidental exposure to product packaging [Recovering/Resolving]
  - Removal of foreign body from gastrointestinal tract [Unknown]
  - Foreign body [Unknown]

NARRATIVE: CASE EVENT DATE: 20170205
